FAERS Safety Report 8577214-2 (Version None)
Quarter: 2012Q3

REPORT INFORMATION
  Report Type: 
  Country: None (occurrence: None)
  Receive Date: 20120807
  Receipt Date: 20120802
  Transmission Date: 20120928
  Serious: Yes (Hospitalization, Other)
  Sender: FDA-Public Use
  Company Number: CA-ELI_LILLY_AND_COMPANY-CA201208001152

PATIENT
  Age: 79 Year
  Sex: Female

DRUGS (10)
  1. ASPIRIN [Concomitant]
  2. ATENOLOL [Concomitant]
  3. APO DILTIAZ [Concomitant]
  4. VITAMIN D [Concomitant]
  5. PERINDOPRIL ERBUMINE [Concomitant]
  6. PANTOPRAZOLE [Concomitant]
  7. COUMADIN [Concomitant]
  8. FORTEO [Suspect]
     Indication: OSTEOPOROSIS
     Dosage: 20 UG, QD
     Route: 058
     Dates: start: 20120717
  9. EZETIMIBE [Concomitant]
  10. CALCIUM [Concomitant]

REACTIONS (3)
  - PAIN [None]
  - ROTATOR CUFF SYNDROME [None]
  - FALL [None]
